FAERS Safety Report 5776552-6 (Version None)
Quarter: 2008Q2

REPORT INFORMATION
  Report Type: 
  Country: None (occurrence: None)
  Receive Date: 20080616
  Receipt Date: 20080609
  Transmission Date: 20081010
  Serious: Yes (Other)
  Sender: FDA-Public Use
  Company Number: 2008SP010560

PATIENT

DRUGS (15)
  1. TEMOZOLOMIDE [Suspect]
     Indication: DRUG USE FOR UNKNOWN INDICATION
     Dosage: SEE IMAGE
     Dates: start: 20071203, end: 20071203
  2. TEMOZOLOMIDE [Suspect]
     Indication: DRUG USE FOR UNKNOWN INDICATION
     Dosage: SEE IMAGE
     Dates: start: 20071217, end: 20071217
  3. TEMOZOLOMIDE [Suspect]
     Indication: DRUG USE FOR UNKNOWN INDICATION
     Dosage: SEE IMAGE
     Dates: start: 20080121, end: 20080121
  4. TEMOZOLOMIDE [Suspect]
     Indication: DRUG USE FOR UNKNOWN INDICATION
     Dosage: SEE IMAGE
     Dates: start: 20080204, end: 20080204
  5. TEMOZOLOMIDE [Suspect]
     Indication: DRUG USE FOR UNKNOWN INDICATION
     Dosage: SEE IMAGE
     Dates: start: 20080218, end: 20080218
  6. TEMOZOLOMIDE [Suspect]
     Indication: DRUG USE FOR UNKNOWN INDICATION
     Dosage: SEE IMAGE
     Dates: start: 20080303, end: 20080303
  7. TEMOZOLOMIDE [Suspect]
     Indication: DRUG USE FOR UNKNOWN INDICATION
     Dosage: SEE IMAGE
     Dates: start: 20080317, end: 20080317
  8. TEMOZOLOMIDE [Suspect]
     Indication: DRUG USE FOR UNKNOWN INDICATION
     Dosage: SEE IMAGE
     Dates: start: 20080331, end: 20080331
  9. TEMOZOLOMIDE [Suspect]
     Indication: DRUG USE FOR UNKNOWN INDICATION
     Dosage: SEE IMAGE
     Dates: start: 20080421, end: 20080421
  10. BISOPROLOL FUMARATE [Concomitant]
  11. FORTECORTIN [Concomitant]
  12. LEVOTHYROXINE SODIUM [Concomitant]
  13. PANTOPRAZOLE SODIUM [Concomitant]
  14. HEPARIN [Concomitant]
  15. REMERGIL [Concomitant]

REACTIONS (1)
  - THROMBOSIS [None]
